FAERS Safety Report 9681227 (Version 1)
Quarter: 2013Q4

REPORT INFORMATION
  Report Type: Spontaneous
  Country: IN (occurrence: IN)
  Receive Date: 20131111
  Receipt Date: 20131111
  Transmission Date: 20140711
  Serious: Yes (Other)
  Sender: FDA-Public Use
  Company Number: IN-MYLANLABS-2013S1024561

PATIENT
  Sex: Male

DRUGS (3)
  1. IMATINIB [Suspect]
     Indication: CHRONIC MYELOID LEUKAEMIA
     Route: 064
  2. HYDROXYCARBAMIDE [Suspect]
     Indication: CHRONIC MYELOID LEUKAEMIA
     Route: 064
  3. ALLOPURINOL [Suspect]
     Indication: CHRONIC MYELOID LEUKAEMIA
     Route: 064

REACTIONS (3)
  - Foetal exposure during pregnancy [Unknown]
  - Apgar score low [Unknown]
  - Low birth weight baby [Unknown]
